FAERS Safety Report 15670654 (Version 4)
Quarter: 2019Q1

REPORT INFORMATION
  Report Type: Report from Study
  Country: CN (occurrence: CN)
  Receive Date: 20181129
  Receipt Date: 20190318
  Transmission Date: 20190417
  Serious: Yes (Hospitalization)
  Sender: FDA-Public Use
  Company Number: CN-ROCHE-2221754

PATIENT
  Age: 62 Year
  Sex: Female
  Weight: 58 kg

DRUGS (14)
  1. POLYENE PHOSPHATIDYLCHOLINE [Concomitant]
     Active Substance: PHOSPHOLIPID
     Route: 065
     Dates: start: 20181020, end: 20181127
  2. COMPOSITE POTASSIUM HYDROGEN PHOSPHATE [Concomitant]
     Route: 065
     Dates: start: 20181107, end: 20181108
  3. OMEPRAZOLE SODIUM [Concomitant]
     Active Substance: OMEPRAZOLE SODIUM
     Route: 065
     Dates: start: 20181107, end: 20181109
  4. CARBOPLATIN. [Suspect]
     Active Substance: CARBOPLATIN
     Indication: OVARIAN CANCER
     Dosage: (AUC) OF 6 (MG/ML/MIN) ?ON 08/NOV/2018, SHE RECEIVED HER MOST RECENT DOSE (778 MG) OF CARBOPLATIN PR
     Route: 042
     Dates: start: 20181018
  5. MAGNESIUM ISOGLYCYRRHIZINATE [Concomitant]
     Active Substance: MAGNESIUM ISOGLYCYRRHIZINATE
     Route: 065
     Dates: start: 20181107, end: 20181109
  6. ATEZOLIZUMAB. [Suspect]
     Active Substance: ATEZOLIZUMAB
     Indication: OVARIAN CANCER
     Dosage: ON 08/NOV/2018, SHE RECEIVED HER MOST RECENT DOSE OF BLINDED ATEZOLIZUMAB PRIOR TO AE AND SAE ONSET.
     Route: 042
     Dates: start: 20181018
  7. GLUCOSE [Concomitant]
     Active Substance: DEXTROSE
     Route: 065
     Dates: start: 20181107, end: 20181109
  8. CIMETIDINE [Concomitant]
     Active Substance: CIMETIDINE
     Indication: HYPERSENSITIVITY
     Route: 065
     Dates: start: 20181108, end: 20181108
  9. BEVACIZUMAB. [Suspect]
     Active Substance: BEVACIZUMAB
     Indication: OVARIAN CANCER
     Dosage: ON 08/NOV/2018, SHE RECEIVED HER MOST RECENT DOSE (810 MG)OF BEVACIZUMAB PRIOR TO AE AND SAE ONSET.
     Route: 042
     Dates: start: 20181108
  10. PACLITAXEL. [Suspect]
     Active Substance: PACLITAXEL
     Indication: OVARIAN CANCER
     Dosage: ON 08/NOV/2018, SHE RECEIVED HER MOST RECENT DOSE (260 MG) OF PACLITAXEL PRIOR TO AE AND SAE ONSET.
     Route: 042
     Dates: start: 20181018
  11. TORASEMID [Concomitant]
     Active Substance: TORSEMIDE
     Indication: POLYURIA
     Route: 065
     Dates: start: 20181108, end: 20181108
  12. DEXAMETHASONE SODIUM PHOSPHATE. [Concomitant]
     Active Substance: DEXAMETHASONE SODIUM PHOSPHATE
     Route: 042
     Dates: start: 20181108, end: 20181108
  13. PALONOSETRON HYDROCHLORIDE. [Concomitant]
     Active Substance: PALONOSETRON HYDROCHLORIDE
     Route: 065
     Dates: start: 20181108, end: 20181108
  14. PEGFILGRASTIM [Concomitant]
     Active Substance: PEGFILGRASTIM
     Indication: WHITE BLOOD CELL COUNT INCREASED
     Route: 065
     Dates: start: 20181109, end: 20181109

REACTIONS (1)
  - Platelet count decreased [Recovered/Resolved]

NARRATIVE: CASE EVENT DATE: 20181126
